FAERS Safety Report 5335967-0 (Version None)
Quarter: 2007Q2

REPORT INFORMATION
  Report Type: 
  Country: None (occurrence: None)
  Receive Date: 20070305
  Receipt Date: 20060721
  Transmission Date: 20071010
  Serious: Yes (Hospitalization)
  Sender: FDA-Public Use
  Company Number: DMR-2006-00043

PATIENT
  Age: 78 Year
  Sex: Female
  Weight: 86.1834 kg

DRUGS (9)
  1. EVOXAC [Suspect]
     Indication: SJOGREN'S SYNDROME
     Dosage: 90 MG (30 MG, 3 DOSES, PER ORAL
     Route: 048
     Dates: start: 20060706, end: 20060707
  2. DILTIAZEM (DILTIAZEM) (UNKNOWN) (DILTIAZEM) [Concomitant]
  3. KLOR-CON (POTASSIUM CHLORIDE) (UNKNOWN) (POTASSIUM CHLORIDE) [Concomitant]
  4. FOLIC ACID (FOLIC ACID) (UNKNOWN) (FOLIC ACID) [Concomitant]
  5. OCUVITE (ASCORBIC ACID, TOCOPHEROL, RETINOL) (UNKNOWN) (ASCORBIC ACID, [Concomitant]
  6. NITRO SPRAY (ISOSORBIDE DINITRATE) (UNKNOWN) (ISOSORBIDE DINITRATE) [Concomitant]
  7. WARFARIN (WARFARIN) (TABLETS) (WARFARIN0 [Concomitant]
  8. ISOSORBIDE MONO (ISOSORBIDE MONONITRATE) [Concomitant]
  9. ZOCOR (SIMVASTATIN) (TABLETS) (SIMVASTATIN0 [Concomitant]

REACTIONS (7)
  - DIZZINESS [None]
  - DYSPNOEA [None]
  - HYPERHIDROSIS [None]
  - LOSS OF CONSCIOUSNESS [None]
  - NAUSEA [None]
  - PYREXIA [None]
  - TACHYCARDIA [None]
